FAERS Safety Report 8570194-5 (Version None)
Quarter: 2012Q3

REPORT INFORMATION
  Report Type: 
  Country: None (occurrence: None)
  Receive Date: 20120803
  Receipt Date: 20120725
  Transmission Date: 20120928
  Serious: Yes (Other)
  Sender: FDA-Public Use
  Company Number: PHHY2012HR066823

PATIENT
  Age: 14 Year
  Sex: Female

DRUGS (2)
  1. ANXIOLYTICS [Concomitant]
  2. RISPERIDONE [Suspect]
     Dosage: 1 MG, QD
     Route: 048

REACTIONS (1)
  - OCULOGYRIC CRISIS [None]
